FAERS Safety Report 6130257-0 (Version None)
Quarter: 2009Q1

REPORT INFORMATION
  Report Type: 
  Country: None (occurrence: None)
  Receive Date: 20090324
  Receipt Date: 20090316
  Transmission Date: 20090719
  Serious: Yes (Other)
  Sender: FDA-Public Use
  Company Number: PHHY2008JP32789

PATIENT
  Age: 54 Year
  Sex: Female

DRUGS (3)
  1. GLEEVEC [Suspect]
     Indication: CHRONIC MYELOID LEUKAEMIA
     Dosage: 400 MG/DAY
     Route: 048
     Dates: start: 20080201, end: 20081006
  2. INTERFERON [Concomitant]
     Dosage: UNK
  3. PREDONINE [Concomitant]
     Indication: RASH
     Dosage: 10 MG, UNK

REACTIONS (4)
  - BRONCHITIS [None]
  - DYSPNOEA [None]
  - PARONYCHIA [None]
  - RASH [None]
